FAERS Safety Report 5311918-X (Version None)
Quarter: 2007Q2

REPORT INFORMATION
  Report Type: 
  Country: None (occurrence: None)
  Receive Date: 20070430
  Receipt Date: 20060420
  Transmission Date: 20071010
  Serious: No
  Sender: FDA-Public Use
  Company Number: 2006UW07102

PATIENT
  Age: 61 Year
  Sex: Male
  Weight: 94.3 kg

DRUGS (5)
  1. NEXIUM [Suspect]
     Indication: GASTROOESOPHAGEAL REFLUX DISEASE
     Route: 048
     Dates: start: 20060201
  2. NEXIUM [Suspect]
     Indication: STOMACH DISCOMFORT
     Route: 048
     Dates: start: 20060201
  3. HYDROCHLOROTHIAZIDE [Concomitant]
  4. BUSPIRONE HCL [Concomitant]
  5. ATENOLOL [Concomitant]

REACTIONS (4)
  - ABDOMINAL DISCOMFORT [None]
  - ABDOMINAL PAIN [None]
  - NAUSEA [None]
  - STOMACH DISCOMFORT [None]
